FAERS Safety Report 20537271 (Version 1)
Quarter: 2022Q1

REPORT INFORMATION
  Report Type: Spontaneous
  Country: UY (occurrence: UY)
  Receive Date: 20220302
  Receipt Date: 20220302
  Transmission Date: 20220423
  Serious: No
  Sender: FDA-Public Use
  Company Number: UY-PFIZER INC-202101863456

PATIENT
  Age: 11 Year
  Sex: Female

DRUGS (1)
  1. GENOTROPIN [Suspect]
     Active Substance: SOMATROPIN
     Indication: Turner^s syndrome
     Dosage: 1.5 MG TO 2 MG
     Dates: start: 20150920

REACTIONS (2)
  - Device mechanical issue [Unknown]
  - Weight decreased [Not Recovered/Not Resolved]
